FAERS Safety Report 19167244 (Version 1)
Quarter: 2021Q2

REPORT INFORMATION
  Report Type: Spontaneous
  Country: US (occurrence: US)
  Receive Date: 20210420
  Receipt Date: 20210420
  Transmission Date: 20210717
  Serious: No
  Sender: FDA-Public Use
  Company Number: None

PATIENT
  Age: 22 Year
  Sex: Male
  Weight: 62 kg

DRUGS (3)
  1. ABILIFY [Suspect]
     Active Substance: ARIPIPRAZOLE
     Indication: AFFECTIVE DISORDER
     Route: 048
     Dates: start: 20210227
  2. LORAZEPAM. [Concomitant]
     Active Substance: LORAZEPAM
     Dates: start: 20210221
  3. HALDOL [Concomitant]
     Active Substance: HALOPERIDOL
     Dates: start: 20210221

REACTIONS (1)
  - Muscle tightness [None]

NARRATIVE: CASE EVENT DATE: 20210314
